FAERS Safety Report 4325599-5 (Version None)
Quarter: 2004Q1

REPORT INFORMATION
  Report Type: 
  Country: None (occurrence: None)
  Receive Date: 20040324
  Receipt Date: 20040304
  Transmission Date: 20041129
  Serious: Yes (Death, Other)
  Sender: FDA-Public Use
  Company Number: US_040199883

PATIENT
  Age: 44 Year
  Sex: Male
  Weight: 83 kg

DRUGS (2)
  1. PROZAC [Suspect]
     Dosage: 40 MG
     Dates: start: 20010208
  2. WELLBUTRIN [Concomitant]

REACTIONS (9)
  - ALCOHOL USE [None]
  - COMPLETED SUICIDE [None]
  - EXTRAPYRAMIDAL DISORDER [None]
  - GUN SHOT WOUND [None]
  - HALLUCINATION, AUDITORY [None]
  - HEAD INJURY [None]
  - HOMICIDAL IDEATION [None]
  - TOXICOLOGIC TEST ABNORMAL [None]
  - TREMOR [None]
